FAERS Safety Report 7817032-3 (Version None)
Quarter: 2011Q4

REPORT INFORMATION
  Report Type: 
  Country: None (occurrence: None)
  Receive Date: 20111014
  Receipt Date: 20111014
  Transmission Date: 20120403
  Serious: Yes (Life-Threatening, Hospitalization)
  Sender: FDA-Public Use
  Company Number: None

PATIENT
  Sex: Male
  Weight: 136.0791 kg

DRUGS (1)
  1. DOXYCYCLINE HYCLATE [Suspect]
     Indication: TOOTH ABSCESS
     Dosage: 1/4 TABLET 2X/DAY
     Dates: start: 20110401

REACTIONS (2)
  - ABDOMINAL DISCOMFORT [None]
  - DYSPNOEA [None]
